FAERS Safety Report 5886600-0 (Version None)
Quarter: 2008Q3

REPORT INFORMATION
  Report Type: 
  Country: None (occurrence: None)
  Receive Date: 20080917
  Receipt Date: 20080903
  Transmission Date: 20090109
  Serious: Yes (Disabling)
  Sender: FDA-Public Use
  Company Number: GB-BAYER-200812439BNE

PATIENT
  Age: 43 Year

DRUGS (1)
  1. ULTRAVIST (PHARMACY BULK) [Suspect]
     Indication: SCAN
     Dates: start: 20080804, end: 20080804

REACTIONS (1)
  - BLINDNESS [None]
